FAERS Safety Report 20314496 (Version 2)
Quarter: 2022Q1

REPORT INFORMATION
  Report Type: Report from Study
  Country: US (occurrence: US)
  Receive Date: 20220110
  Receipt Date: 20220314
  Transmission Date: 20220423
  Serious: Yes (Hospitalization)
  Sender: FDA-Public Use
  Company Number: US-GILEAD-2022-0564118

PATIENT
  Sex: Male

DRUGS (18)
  1. SACITUZUMAB GOVITECAN [Suspect]
     Active Substance: SACITUZUMAB GOVITECAN
     Indication: Transitional cell cancer of the renal pelvis and ureter
     Dosage: 841 MG, D1 + D8 OF CYCLE
     Route: 042
     Dates: start: 20200709
  2. SACITUZUMAB GOVITECAN [Suspect]
     Active Substance: SACITUZUMAB GOVITECAN
     Dosage: 433 MG, D1 + D8 OF CYCLE
     Route: 042
     Dates: end: 20211227
  3. PEMBROLIZUMAB [Suspect]
     Active Substance: PEMBROLIZUMAB
     Indication: Transitional cell cancer of the renal pelvis and ureter
     Dosage: 200 MG, D1 OF CYCLE
     Route: 042
     Dates: start: 20200709, end: 20211221
  4. HUMAN RED BLOOD CELL [Concomitant]
     Active Substance: HUMAN RED BLOOD CELL
  5. INSULIN NOS [Concomitant]
     Active Substance: INSULIN NOS
  6. TOUJEO [Concomitant]
     Active Substance: INSULIN GLARGINE
  7. ACETAMINOPHEN [Concomitant]
     Active Substance: ACETAMINOPHEN
  8. ALBUTEROL SULFATE [Concomitant]
     Active Substance: ALBUTEROL SULFATE
  9. ALLOPURINOL [Concomitant]
     Active Substance: ALLOPURINOL
  10. ASPIRIN [Concomitant]
     Active Substance: ASPIRIN
  11. ATORVASTATIN [Concomitant]
     Active Substance: ATORVASTATIN
  12. CALCIUM CARBONATE [Concomitant]
     Active Substance: CALCIUM CARBONATE
  13. ESCITALOPRAM [Concomitant]
     Active Substance: ESCITALOPRAM OXALATE
  14. FINASTERIDE [Concomitant]
     Active Substance: FINASTERIDE
  15. FLUTICASONE PROPIONATE [Concomitant]
     Active Substance: FLUTICASONE PROPIONATE
  16. POTASSIUM CHLORIDE [Concomitant]
     Active Substance: POTASSIUM CHLORIDE
  17. TAMSULOSIN [Concomitant]
     Active Substance: TAMSULOSIN
  18. TRULICITY [Concomitant]
     Active Substance: DULAGLUTIDE

REACTIONS (2)
  - Oesophagitis [Recovered/Resolved with Sequelae]
  - Anaemia [Recovered/Resolved with Sequelae]

NARRATIVE: CASE EVENT DATE: 20220103
